FAERS Safety Report 11343587 (Version 1)
Quarter: 2015Q3

REPORT INFORMATION
  Report Type: Spontaneous
  Country: US (occurrence: None)
  Receive Date: 20150804
  Receipt Date: 20150804
  Transmission Date: 20151125
  Serious: Yes (Hospitalization)
  Sender: FDA-Public Use
  Company Number: None

PATIENT
  Age: 67 Year
  Sex: Male
  Weight: 68.5 kg

DRUGS (2)
  1. HYDROCHLOROTHIAZIDE. [Suspect]
     Active Substance: HYDROCHLOROTHIAZIDE
     Indication: PANCREATITIS ACUTE
     Route: 048
     Dates: start: 20130614, end: 20150730
  2. HYDROCHLOROTHIAZIDE. [Suspect]
     Active Substance: HYDROCHLOROTHIAZIDE
     Indication: ENCEPHALOPATHY
     Route: 048
     Dates: start: 20130614, end: 20150730

REACTIONS (3)
  - Confusional state [None]
  - Encephalopathy [None]
  - Pancreatitis acute [None]

NARRATIVE: CASE EVENT DATE: 20150730
